FAERS Safety Report 9876512 (Version 2)
Quarter: 2014Q1

REPORT INFORMATION
  Report Type: Other
  Country: US (occurrence: US)
  Receive Date: 20140206
  Receipt Date: 20140206
  Transmission Date: 20141002
  Serious: No
  Sender: FDA-Public Use
  Company Number: US-ACORDA-ACO_37162_2013

PATIENT
  Age: 62 Year
  Sex: Male
  Weight: 113.38 kg

DRUGS (6)
  1. AMPYRA [Suspect]
     Indication: PRODUCT USED FOR UNKNOWN INDICATION
     Dosage: 10 MG, BID
     Route: 048
     Dates: start: 20100618
  2. TECFIDERA [Concomitant]
     Indication: MULTIPLE SCLEROSIS
     Dosage: 240 MG, BID
     Route: 048
  3. METFORMIN HCL [Concomitant]
     Indication: DIABETES MELLITUS
     Dosage: 500 MG, QD
     Route: 048
  4. VITAMIN D [Concomitant]
     Indication: HYPOVITAMINOSIS
     Dosage: 1000 UT, QD
     Route: 048
  5. PROVIGIL [Concomitant]
     Indication: FATIGUE
     Dosage: 200 MG, QD
     Route: 048
  6. OMEGA 3 FISH OIL [Concomitant]
     Indication: PRODUCT USED FOR UNKNOWN INDICATION
     Dosage: UNK
     Route: 065

REACTIONS (1)
  - Flushing [Unknown]
